FAERS Safety Report 8267359 (Version 4)
Quarter: 2014Q2

REPORT INFORMATION
  Report Type: Spontaneous
  Country: JP (occurrence: JP)
  Receive Date: 20111129
  Receipt Date: 20140416
  Transmission Date: 20141212
  Serious: Yes (Hospitalization, Other)
  Sender: FDA-Public Use
  Company Number: JP-MERCK-1111USA02793

PATIENT
  Age: 78 Year
  Sex: Female

DRUGS (4)
  1. FOSAMAC TABLETS 35MG [Suspect]
     Indication: OSTEOPOROSIS
     Dosage: 35 MG, 1/1 WEEK
     Route: 048
     Dates: start: 200801, end: 201011
  2. PREDNISOLONE [Concomitant]
     Indication: POLYMYALGIA RHEUMATICA
     Dosage: 5-10 MG (DAILY DOSE UNKNOWN)
     Route: 048
     Dates: start: 2002
  3. WARFARIN [Concomitant]
     Indication: ANTIPHOSPHOLIPID SYNDROME
     Dosage: 1.25 MG, QD (DIVIDED DOSE FREQUENCY UNKNOWN)
     Route: 048
  4. BUCOLOME [Concomitant]
     Indication: ANTIPHOSPHOLIPID SYNDROME
     Dosage: 300 MG, QD (DIVIDED DOSE FREQUENCY UNKNOWN)
     Route: 048

REACTIONS (4)
  - Necrotising fasciitis [Unknown]
  - Osteonecrosis of jaw [Unknown]
  - Abscess [Unknown]
  - Jaw operation [Unknown]
